FAERS Safety Report 7320449-7 (Version None)
Quarter: 2011Q1

REPORT INFORMATION
  Report Type: 
  Country: None (occurrence: None)
  Receive Date: 20110228
  Receipt Date: 20110217
  Transmission Date: 20110831
  Serious: Yes (Life-Threatening)
  Sender: FDA-Public Use
  Company Number: B0697522A

PATIENT
  Sex: Male
  Weight: 64 kg

DRUGS (3)
  1. IMMUNOGLOBULINS [Concomitant]
  2. AUGMENTIN '125' [Suspect]
     Indication: BRONCHITIS
     Dosage: 2TAB SINGLE DOSE
     Route: 065
  3. CLAVUCID [Concomitant]

REACTIONS (11)
  - GENERALISED ERYTHEMA [None]
  - BRONCHOSPASM [None]
  - PYREXIA [None]
  - ERYTHEMA [None]
  - PRURITUS [None]
  - RASH [None]
  - BLOOD PRESSURE DECREASED [None]
  - HYPOTENSION [None]
  - DYSPNOEA [None]
  - SWOLLEN TONGUE [None]
  - SHOCK [None]
